FAERS Safety Report 10183927 (Version 1)
Quarter: 2014Q2

REPORT INFORMATION
  Report Type: Spontaneous
  Country: FR (occurrence: FR)
  Receive Date: 20140520
  Receipt Date: 20140520
  Transmission Date: 20141212
  Serious: Yes (Hospitalization)
  Sender: FDA-Public Use
  Company Number: FR-B.I. PHARMACEUTICALS,INC./RIDGEFIELD-2014-BI-21879BY

PATIENT
  Age: 73 Year
  Sex: Female

DRUGS (11)
  1. PRITOR PLUS [Suspect]
     Indication: HYPERTENSION
     Dosage: 1 ANZ
     Route: 048
  2. VERAPAMIL [Suspect]
     Indication: HYPERTENSION
     Dosage: 120 MG
     Route: 048
  3. INDAPAMIDE [Suspect]
     Indication: HYPERTENSION
     Dosage: 3.75 MG
     Route: 048
  4. LEVEMIR [Concomitant]
     Route: 065
  5. HUMALOG [Concomitant]
     Route: 065
  6. PARIET [Concomitant]
     Route: 065
  7. PERIDYS [Concomitant]
     Route: 065
  8. FOSAVANCE [Concomitant]
     Route: 065
  9. IXPRIM [Concomitant]
     Route: 065
  10. ATENOLOL [Concomitant]
     Route: 065
  11. PREVISCAN [Concomitant]
     Route: 065

REACTIONS (3)
  - Malaise [Unknown]
  - Loss of consciousness [Unknown]
  - Orthostatic hypotension [Unknown]
